FAERS Safety Report 18010015 (Version 2)
Quarter: 2020Q3

REPORT INFORMATION
  Report Type: Report from Study
  Country: CO (occurrence: CO)
  Receive Date: 20200710
  Receipt Date: 20200716
  Transmission Date: 20201103
  Serious: Yes (Death, Other)
  Sender: FDA-Public Use
  Company Number: CO-ASTRAZENECA-2020SE86792

PATIENT
  Age: 29714 Day
  Sex: Female

DRUGS (1)
  1. TAGRISSO [Suspect]
     Active Substance: OSIMERTINIB
     Indication: LUNG NEOPLASM MALIGNANT
     Route: 048
     Dates: start: 20200124, end: 20200415

REACTIONS (3)
  - Pneumonitis [Unknown]
  - Pneumonia [Fatal]
  - Oncologic complication [Fatal]

NARRATIVE: CASE EVENT DATE: 20200704
